FAERS Safety Report 16568336 (Version 2)
Quarter: 2019Q3

REPORT INFORMATION
  Report Type: Spontaneous
  Country: US (occurrence: US)
  Receive Date: 20190712
  Receipt Date: 20190729
  Transmission Date: 20191004
  Serious: Yes (Death, Other)
  Sender: FDA-Public Use
  Company Number: US-PURDUE-USA-2019-0147708

PATIENT
  Age: 1 Year
  Sex: Male

DRUGS (1)
  1. OXYCODONE HYDROCHLORIDE (SIMILAR TO NDA 22-272) [Suspect]
     Active Substance: OXYCODONE HYDROCHLORIDE
     Indication: PRODUCT USED FOR UNKNOWN INDICATION
     Dosage: UNK
     Route: 048

REACTIONS (6)
  - Product administered to patient of inappropriate age [Not Recovered/Not Resolved]
  - Unevaluable event [Unknown]
  - Victim of homicide [Fatal]
  - Unresponsive to stimuli [Unknown]
  - Foaming at mouth [Unknown]
  - Overdose [Fatal]

NARRATIVE: CASE EVENT DATE: 20190328
